APPROVED DRUG PRODUCT: ALBUTEROL SULFATE
Active Ingredient: ALBUTEROL SULFATE
Strength: EQ 2MG BASE/5ML
Dosage Form/Route: SYRUP;ORAL
Application: A079241 | Product #001 | TE Code: AA
Applicant: AMNEAL PHARMACEUTICALS
Approved: May 12, 2010 | RLD: No | RS: No | Type: RX